FAERS Safety Report 8161142-0 (Version None)
Quarter: 2012Q1

REPORT INFORMATION
  Report Type: 
  Country: None (occurrence: None)
  Receive Date: 20120224
  Receipt Date: 20120217
  Transmission Date: 20120608
  Serious: No
  Sender: FDA-Public Use
  Company Number: US-PFIZER INC-2012032409

PATIENT
  Sex: Female

DRUGS (2)
  1. ACCUPRIL [Suspect]
     Dosage: 40 MG, DAILY
     Route: 048
     Dates: start: 20110101
  2. ACCUPRIL [Suspect]
     Indication: HYPERTENSION
     Dosage: 40 MG, 2X/DAY
     Route: 048
     Dates: start: 20000101

REACTIONS (3)
  - BLOOD TRIGLYCERIDES INCREASED [None]
  - HYPERTENSION [None]
  - BLOOD GLUCOSE INCREASED [None]
